FAERS Safety Report 4376747-2 (Version None)
Quarter: 2004Q2

REPORT INFORMATION
  Report Type: 
  Country: None (occurrence: None)
  Receive Date: 20040609
  Receipt Date: 20040427
  Transmission Date: 20050107
  Serious: Yes (Hospitalization)
  Sender: FDA-Public Use
  Company Number: 2004210753PR

PATIENT
  Sex: Male
  Weight: 90.7 kg

DRUGS (10)
  1. BEXTRA [Suspect]
     Indication: BACK PAIN
     Dosage: 10 MG, QD, ORAL
     Route: 048
     Dates: start: 20030401, end: 20030702
  2. HYZAAR [Concomitant]
  3. ATENOLOL [Concomitant]
  4. LOPID [Concomitant]
  5. VASOTEC [Concomitant]
  6. LASIX [Concomitant]
  7. LANOXIN [Concomitant]
  8. NEURONTIN [Concomitant]
  9. GLYBURIDE [Concomitant]
  10. ZYLOPRIM [Concomitant]

REACTIONS (4)
  - ANAEMIA [None]
  - GASTRIC ULCER HAEMORRHAGE [None]
  - GASTRITIS EROSIVE [None]
  - HAEMORRHOIDS [None]
